FAERS Safety Report 6998344-2 (Version None)
Quarter: 2010Q3

REPORT INFORMATION
  Report Type: 
  Country: None (occurrence: None)
  Receive Date: 20100920
  Receipt Date: 20100907
  Transmission Date: 20110219
  Serious: Yes (Hospitalization, Other)
  Sender: FDA-Public Use
  Company Number: CA-JNJFOC-20100804016

PATIENT
  Age: 57 Year
  Sex: Female
  Weight: 108 kg

DRUGS (11)
  1. REMICADE [Suspect]
     Indication: PSORIATIC ARTHROPATHY
     Route: 042
  2. REMICADE [Suspect]
     Route: 042
  3. FOSINOPRIL SODIUM [Concomitant]
     Indication: HYPERTENSION
     Route: 048
  4. METHOTREXATE [Concomitant]
     Indication: PSORIATIC ARTHROPATHY
     Route: 048
  5. CALCIUM [Concomitant]
     Route: 048
  6. VITAMIN D3 [Concomitant]
  7. PANTOLOC [Concomitant]
     Indication: DYSPEPSIA
  8. ACETAMINOPHEN [Concomitant]
  9. ALL OTHER THERAPEUTIC AGENTS [Concomitant]
     Indication: HYPERTENSION
     Route: 048
  10. ASAPHEN [Concomitant]
     Indication: TRANSIENT ISCHAEMIC ATTACK
     Route: 048
  11. ASAPHEN [Concomitant]
     Route: 048

REACTIONS (2)
  - ANAEMIA [None]
  - COLON CANCER [None]
